FAERS Safety Report 25244711 (Version 2)
Quarter: 2025Q3

REPORT INFORMATION
  Report Type: Spontaneous
  Country: US (occurrence: US)
  Receive Date: 20250428
  Receipt Date: 20250818
  Transmission Date: 20251021
  Serious: No
  Sender: LUPIN
  Company Number: US-LUPIN PHARMACEUTICALS INC.-2025-03384

PATIENT
  Age: 68 Year
  Weight: 76.19 kg

DRUGS (1)
  1. ALBUTEROL SULFATE [Suspect]
     Active Substance: ALBUTEROL SULFATE
     Indication: Emphysema

REACTIONS (4)
  - Product packaging quantity issue [Unknown]
  - Wrong technique in product usage process [Unknown]
  - Product use issue [Unknown]
  - No adverse event [Unknown]
